FAERS Safety Report 5352219-3 (Version None)
Quarter: 2007Q2

REPORT INFORMATION
  Report Type: 
  Country: None (occurrence: None)
  Receive Date: 20070607
  Receipt Date: 20070531
  Transmission Date: 20071010
  Serious: Yes (Other)
  Sender: FDA-Public Use
  Company Number: 2007SP009786

PATIENT
  Age: 40 Year
  Sex: Male
  Weight: 66.6788 kg

DRUGS (2)
  1. PEG-INTRON [Suspect]
     Indication: HEPATITIS C
     Dosage: SC
     Route: 058
     Dates: start: 20070518
  2. RIBAPAK [Suspect]
     Indication: HEPATITIS C
     Dosage: PO
     Route: 048
     Dates: start: 20070518

REACTIONS (4)
  - ANOREXIA [None]
  - DEHYDRATION [None]
  - PAIN IN EXTREMITY [None]
  - WEIGHT DECREASED [None]
